FAERS Safety Report 10435047 (Version 1)
Quarter: 2014Q2

REPORT INFORMATION
  Report Type: Spontaneous
  Country: US (occurrence: None)
  Receive Date: 20140618
  Receipt Date: 20140618
  Transmission Date: 20141212
  Serious: Yes (Other)
  Sender: FDA-Public Use
  Company Number: 093355U

PATIENT
  Age: 65 Year
  Sex: Female

DRUGS (2)
  1. LACOSAMIDE [Suspect]
     Indication: CONVULSION
  2. DILANTON [Concomitant]

REACTIONS (3)
  - Coordination abnormal [None]
  - Vision blurred [None]
  - Fall [None]
